FAERS Safety Report 5759573-9 (Version None)
Quarter: 2008Q2

REPORT INFORMATION
  Report Type: 
  Country: None (occurrence: None)
  Receive Date: 20080605
  Receipt Date: 20080530
  Transmission Date: 20081010
  Serious: Yes (Other)
  Sender: FDA-Public Use
  Company Number: JP-ASTRAZENECA-2008AP04125

PATIENT
  Age: 80 Year
  Sex: Male

DRUGS (1)
  1. DIPRIVAN INJECTION - KIT [Suspect]
     Indication: SEDATION
     Dosage: 450 ML (TOTAL DOSE)
     Route: 041
     Dates: start: 20080512, end: 20080515

REACTIONS (1)
  - PANCREATITIS [None]
